FAERS Safety Report 10052098 (Version 1)
Quarter: 2014Q2

REPORT INFORMATION
  Report Type: Spontaneous
  Country: US (occurrence: US)
  Receive Date: 20140402
  Receipt Date: 20140402
  Transmission Date: 20141212
  Serious: Yes (Congenital Anomaly, Other)
  Sender: FDA-Public Use
  Company Number: US-MERCK-1403USA012824

PATIENT
  Sex: Male

DRUGS (1)
  1. ZEMURON [Suspect]
     Dosage: UNK
     Route: 064

REACTIONS (3)
  - Deformity [Unknown]
  - Shock [Unknown]
  - Foetal exposure during pregnancy [Recovered/Resolved]
